FAERS Safety Report 4941204-9 (Version None)
Quarter: 2006Q1

REPORT INFORMATION
  Report Type: 
  Country: None (occurrence: None)
  Receive Date: 20060310
  Receipt Date: 20060310
  Transmission Date: 20060701
  Serious: Yes (Other)
  Sender: FDA-Public Use
  Company Number: None

PATIENT
  Age: 39 Year
  Sex: Female

DRUGS (3)
  1. PPD [Suspect]
     Dosage: (L) FORE ARM
     Route: 023
     Dates: start: 20060131
  2. TOPROL [Concomitant]
  3. DEPO-PROVERA [Concomitant]

REACTIONS (4)
  - OEDEMA PERIPHERAL [None]
  - PAIN [None]
  - RASH [None]
  - SWOLLEN TONGUE [None]
